FAERS Safety Report 25720723 (Version 3)
Quarter: 2025Q3

REPORT INFORMATION
  Report Type: Report from Study
  Country: US (occurrence: US)
  Receive Date: 20250825
  Receipt Date: 20250915
  Transmission Date: 20251021
  Serious: Yes (Other)
  Sender: MALLINCKRODT
  Company Number: US-MALLINCKRODT-MNK202505162

PATIENT
  Age: 7 Month
  Sex: Female
  Weight: 8 kg

DRUGS (5)
  1. CORTICOTROPIN [Suspect]
     Active Substance: CORTICOTROPIN
     Indication: Infantile spasms
     Route: 030
     Dates: start: 20250814
  2. CLOBAZAM [Concomitant]
     Active Substance: CLOBAZAM
     Dosage: UNKNOWN
     Route: 048
  3. ONFI [Concomitant]
     Active Substance: CLOBAZAM
  4. ONFI [Concomitant]
     Active Substance: CLOBAZAM
  5. KEPPRA [Concomitant]
     Active Substance: LEVETIRACETAM

REACTIONS (3)
  - Brain injury [Unknown]
  - Seizure [Not Recovered/Not Resolved]
  - Crying [Recovered/Resolved]

NARRATIVE: CASE EVENT DATE: 20250801
